FAERS Safety Report 4686301-0 (Version None)
Quarter: 2005Q2

REPORT INFORMATION
  Report Type: 
  Country: None (occurrence: None)
  Receive Date: 20050606
  Receipt Date: 20050524
  Transmission Date: 20051028
  Serious: Yes (Disabling)
  Sender: FDA-Public Use
  Company Number: 2005079478

PATIENT
  Age: 69 Year
  Sex: Female
  Weight: 60 kg

DRUGS (1)
  1. ZITHROMAX [Suspect]
     Indication: ILL-DEFINED DISORDER
     Dosage: 500 MG (500 MG, DAILY), ORAL
     Route: 048
     Dates: start: 20050425, end: 20050428

REACTIONS (4)
  - BALANCE DISORDER [None]
  - DIZZINESS [None]
  - MALAISE [None]
  - VOMITING [None]
